FAERS Safety Report 4504897-6 (Version None)
Quarter: 2004Q4

REPORT INFORMATION
  Report Type: 
  Country: None (occurrence: None)
  Receive Date: 20040928
  Receipt Date: 20040714
  Transmission Date: 20050328
  Serious: No
  Sender: FDA-Public Use
  Company Number: 04P-163-0267039-00

PATIENT
  Age: 44 Year
  Sex: Female
  Weight: 94.3482 kg

DRUGS (15)
  1. HUMIRA [Suspect]
     Indication: RHEUMATOID ARTHRITIS
     Dosage: 40 MG 1 IN 2 WK SUBCUTANEOUS
     Route: 058
     Dates: start: 20030901, end: 20040331
  2. METHOTREXATE [Concomitant]
  3. FOLINIC ACID [Concomitant]
  4. ROFECOXIB [Concomitant]
  5. PAROXETINE HYDROCHLORIDE [Concomitant]
  6. FOLIC ACID [Concomitant]
  7. SALMETEROL XINAFOATE [Concomitant]
  8. BECLOMETHASONE DIPROPIONATE [Concomitant]
  9. SALBUTAMOL [Concomitant]
  10. IPATROPIUM BROMIDE [Concomitant]
  11. LORNEX [Concomitant]
  12. CALCIUM WITH VITAMIN D [Concomitant]
  13. FEXOFENADINE HYDROCHLORIDE [Concomitant]
  14. MOPHORAN SODIUM [Concomitant]
  15. HYDROCODONE [Concomitant]

REACTIONS (5)
  - BRONCHITIS [None]
  - CONDITION AGGRAVATED [None]
  - INJECTION SITE ERYTHEMA [None]
  - RHEUMATOID ARTHRITIS [None]
  - SINUSITIS [None]
